FAERS Safety Report 6491510-4 (Version None)
Quarter: 2009Q4

REPORT INFORMATION
  Report Type: 
  Country: None (occurrence: None)
  Receive Date: 20091211
  Receipt Date: 20091208
  Transmission Date: 20100525
  Serious: Yes (Hospitalization)
  Sender: FDA-Public Use
  Company Number: US-BAYER-200938115NA

PATIENT
  Age: 46 Year
  Sex: Female
  Weight: 49 kg

DRUGS (11)
  1. CIPROFLOXACIN [Suspect]
     Indication: PSEUDOMONAS INFECTION
     Route: 042
     Dates: start: 20090101
  2. CIPROFLOXACIN [Suspect]
     Route: 048
     Dates: start: 20090101, end: 20091010
  3. BLOOD TRANSFUSION [Suspect]
     Indication: DRUG USE FOR UNKNOWN INDICATION
     Dates: start: 20091001
  4. ACYCLOVIR [Concomitant]
     Dosage: TOTAL DAILY DOSE: 1600 MG
     Route: 048
  5. CALCIUM +VIT D [Concomitant]
  6. MEDROXYPROGESTERONE [Concomitant]
     Route: 048
  7. PROTONIX [Concomitant]
     Dosage: TOTAL DAILY DOSE: 80 MG
     Route: 048
  8. PAROXETINE [Concomitant]
     Dosage: TOTAL DAILY DOSE: 40 MG
     Route: 048
  9. TACROLIMUS [Concomitant]
     Dosage: TOTAL DAILY DOSE: 8 MG
     Route: 048
  10. BACTRIM [Concomitant]
     Dosage: TOTAL DAILY DOSE: 2 DF
     Route: 048
  11. URSODIOL [Concomitant]
     Dosage: TOTAL DAILY DOSE: 600 MG
     Route: 048

REACTIONS (5)
  - CHEST PAIN [None]
  - DIARRHOEA [None]
  - HYPOTENSION [None]
  - PSEUDOMONAS INFECTION [None]
  - RASH ERYTHEMATOUS [None]
